FAERS Safety Report 23852908 (Version 2)
Quarter: 2025Q1

REPORT INFORMATION
  Report Type: Report from Study
  Country: CA (occurrence: CA)
  Receive Date: 20240514
  Receipt Date: 20250128
  Transmission Date: 20250409
  Serious: Yes (Death, Other)
  Sender: MYLAN
  Company Number: CA-MYLANLABS-2024M1043092

PATIENT
  Age: 65 Year
  Sex: Male
  Weight: 70 kg

DRUGS (12)
  1. CLOZAPINE [Suspect]
     Active Substance: CLOZAPINE
     Indication: Schizophrenia
     Dosage: UNK UNK, BID  (50 MG MORNING, 75 MG AT BEDTIME)
     Route: 065
     Dates: start: 20040322
  2. LAMICTAL [Concomitant]
     Active Substance: LAMOTRIGINE
     Dosage: 62.5 MILLIGRAM, PM (AT BEDTIME)
     Route: 065
  3. KEPPRA [Concomitant]
     Active Substance: LEVETIRACETAM
     Dosage: 750 MILLIGRAM, BID
     Route: 065
  4. DEPAKENE [Concomitant]
     Active Substance: VALPROIC ACID
     Dosage: 1000 MILLIGRAM, BID
     Route: 065
  5. HALDOL [Concomitant]
     Active Substance: HALOPERIDOL
     Dosage: 15 MILLIGRAM, BID (BY MOUTH TWICE A DAY)
     Route: 048
  6. COGENTIN [Concomitant]
     Active Substance: BENZTROPINE MESYLATE
     Dosage: 0.5 MILLIGRAM, BID (BY MOUTH TWICE A DAY)
     Route: 048
  7. DEXILANT [Concomitant]
     Active Substance: DEXLANSOPRAZOLE
     Dosage: 60 DOSAGE FORM, QD (60 EVERY DAY)
     Route: 065
  8. SENOKOT [Concomitant]
     Active Substance: SENNOSIDES
     Route: 065
  9. DDAVP [Concomitant]
     Active Substance: DESMOPRESSIN ACETATE
     Dosage: 0.3 MILLIGRAM, TID
     Route: 065
  10. SYNTHROID [Concomitant]
     Active Substance: LEVOTHYROXINE SODIUM
     Dosage: 137 MICROGRAM, QD
     Route: 048
  11. B12 [Concomitant]
     Dosage: 1200 MICROGRAM, QD
     Route: 065
  12. VITAMIN D [Concomitant]
     Active Substance: VITAMIN D NOS
     Dosage: UNK, QW (10 THOUSAND UNITS BY MOUTH EVERY WEEK)
     Route: 048

REACTIONS (6)
  - Sudden death [Fatal]
  - Arrhythmia [Fatal]
  - Neutropenia [Recovered/Resolved]
  - Dehydration [Unknown]
  - Electrolyte imbalance [Unknown]
  - Vomiting [Unknown]

NARRATIVE: CASE EVENT DATE: 20230611
